FAERS Safety Report 12171788 (Version 1)
Quarter: 2016Q1

REPORT INFORMATION
  Report Type: Spontaneous
  Country: DE (occurrence: DE)
  Receive Date: 20160311
  Receipt Date: 20160311
  Transmission Date: 20160526
  Serious: Yes (Other)
  Sender: FDA-Public Use
  Company Number: DE-PFIZER INC-2016147069

PATIENT
  Sex: Male
  Weight: 2.96 kg

DRUGS (5)
  1. CEFUROXIME. [Concomitant]
     Active Substance: CEFUROXIME
     Indication: SINUSITIS
     Dosage: UNK
     Route: 064
  2. EUTHYROX [Concomitant]
     Active Substance: LEVOTHYROXINE SODIUM
     Indication: HYPOTHYROIDISM
     Dosage: 100-75 UG, DAILY
     Route: 064
     Dates: start: 20141217, end: 20150910
  3. FEMIBION SCHWANGERSCHAFT 1 [Concomitant]
     Indication: PROPHYLAXIS OF NEURAL TUBE DEFECT
     Dosage: 0.8 MG, 1X/DAY
     Route: 064
     Dates: start: 20141217, end: 20150910
  4. METOPROLOL. [Concomitant]
     Active Substance: METOPROLOL
     Indication: MIGRAINE
     Dosage: 37.5 MG, DAILY (12.5-0-25)
     Route: 064
  5. SERTRALINE HCL [Suspect]
     Active Substance: SERTRALINE HYDROCHLORIDE
     Indication: DEPRESSION
     Dosage: 31.3. - 38.1. GESTATIONAL WEEK 50 MG, 1X/DAY
     Route: 064

REACTIONS (3)
  - Exposure during pregnancy [Recovered/Resolved]
  - Temperature regulation disorder [Recovered/Resolved]
  - Respiratory disorder neonatal [Recovered/Resolved]
